FAERS Safety Report 4631853-X (Version None)
Quarter: 2005Q2

REPORT INFORMATION
  Report Type: 
  Country: None (occurrence: None)
  Receive Date: 20050404
  Receipt Date: 20050125
  Transmission Date: 20051028
  Serious: No
  Sender: FDA-Public Use
  Company Number: 05H-163-0288300-00

PATIENT
  Age: 64 Year
  Sex: Male

DRUGS (2)
  1. MIDAZOLAM HYDROCHLORIDE INJECTION, PRESERVATIVE  FREE VIAL (MIDAZOLAM [Suspect]
     Indication: SEDATION
     Dosage: 2 MG, TWICE, INTRAVENOUS
     Route: 042
     Dates: start: 20050121, end: 20050121
  2. EYE DROP [Concomitant]

REACTIONS (4)
  - DISORIENTATION [None]
  - DRUG EFFECT DECREASED [None]
  - DYSARTHRIA [None]
  - DYSSTASIA [None]
